FAERS Safety Report 8212702-X (Version None)
Quarter: 2012Q1

REPORT INFORMATION
  Report Type: 
  Country: None (occurrence: None)
  Receive Date: 20120315
  Receipt Date: 20120313
  Transmission Date: 20120608
  Serious: No
  Sender: FDA-Public Use
  Company Number: US-PFIZER INC-2012067664

PATIENT
  Sex: Male

DRUGS (2)
  1. CHANTIX [Suspect]
     Indication: SMOKING CESSATION THERAPY
     Dosage: UNK
     Route: 048
     Dates: start: 20120311
  2. PROAIR HFA [Concomitant]
     Indication: BRONCHITIS
     Dosage: UNK
     Dates: start: 20120301

REACTIONS (2)
  - VOMITING [None]
  - NIGHTMARE [None]
